FAERS Safety Report 6715233-9 (Version None)
Quarter: 2010Q2

REPORT INFORMATION
  Report Type: 
  Country: None (occurrence: None)
  Receive Date: 20100507
  Receipt Date: 20100426
  Transmission Date: 20101027
  Serious: Yes (Death, Life-Threatening, Hospitalization, Other)
  Sender: FDA-Public Use
  Company Number: DE-PFIZER INC-2010052089

PATIENT
  Age: 47 Year
  Sex: Female

DRUGS (39)
  1. AMPICILLIN AND SULBACTAM [Suspect]
     Indication: CYSTITIS
     Dosage: 1.5 G, 3X/DAY
     Route: 042
     Dates: start: 20081110, end: 20081112
  2. AMPICILLIN AND SULBACTAM [Suspect]
     Dosage: 1.5 G, 3X/DAY
     Route: 042
     Dates: start: 20081115, end: 20081125
  3. MARCUMAR [Suspect]
     Indication: THROMBOSIS
     Dosage: UNK
     Route: 048
     Dates: start: 20080101, end: 20081107
  4. MARCUMAR [Suspect]
     Dosage: UNK
     Route: 048
     Dates: start: 20081129, end: 20081202
  5. SODIUM BICARBONATE [Suspect]
     Indication: METABOLIC ACIDOSIS
     Dosage: 1 G, 2X/DAY
     Route: 048
     Dates: start: 20080101
  6. PREDNISOLON [Suspect]
     Indication: BACK PAIN
     Dosage: 10 MG, UNK
     Route: 048
     Dates: start: 20080101
  7. ONE-ALPHA [Suspect]
     Indication: METABOLIC ACIDOSIS
     Dosage: 0.25 %, UNK
     Route: 048
     Dates: start: 20080101
  8. SODIUM BICARBONATE [Suspect]
     Indication: ACIDOSIS
     Dosage: 100 ML, UNK
     Route: 042
     Dates: start: 20081110, end: 20081111
  9. SODIUM BICARBONATE [Suspect]
     Dosage: 100 ML, UNK
     Route: 042
     Dates: start: 20081118, end: 20081121
  10. NOVANOX [Suspect]
     Indication: SLEEP DISORDER
     Dosage: UNK
     Route: 048
     Dates: start: 20081111, end: 20081112
  11. NOVANOX [Suspect]
     Dosage: UNK
     Route: 048
     Dates: start: 20081114, end: 20081116
  12. NOVANOX [Suspect]
     Dosage: UNK
     Route: 048
     Dates: start: 20081119, end: 20081121
  13. CALCIUM CHLORIDE/ HCL POLYHEXANIDE /POTASSIUM CHLORIDE/SODIUM CHLORIDE [Suspect]
     Indication: FLUID REPLACEMENT
     Dosage: 2000 ML, UNK
     Route: 042
     Dates: start: 20081117, end: 20081119
  14. ARTERENOL [Suspect]
     Indication: HYPOTENSION
     Dosage: UNK
     Route: 042
     Dates: start: 20081118, end: 20081119
  15. TPN [Suspect]
     Indication: PARENTERAL NUTRITION
     Dosage: 1000 ML, UNK
     Route: 042
     Dates: start: 20081118, end: 20081119
  16. HETASTARCH IN SODIUM CHLORIDE [Suspect]
     Indication: HYPOTENSION
     Dosage: 500 ML, UNK
     Route: 042
     Dates: start: 20081118, end: 20081119
  17. HEPARIN SODIUM [Suspect]
     Indication: THROMBOSIS PROPHYLAXIS
     Dosage: 25000 IU, UNK
     Route: 042
     Dates: start: 20081118, end: 20081121
  18. ACC FOR INJECTION [Suspect]
     Indication: SECRETION DISCHARGE
     Dosage: 300 MG, UNK
     Route: 042
     Dates: start: 20081118, end: 20081121
  19. GELAFUNDIN ^BRAUN^ [Suspect]
     Indication: HYPOTENSION
     Dosage: 500 ML, UNK
     Route: 042
     Dates: start: 20081119, end: 20081119
  20. SOLU-DECORTIN-H [Suspect]
     Indication: HYPERSENSITIVITY
     Dosage: 150 MG, UNK
     Route: 042
     Dates: start: 20081119, end: 20081120
  21. KONAKION [Suspect]
     Indication: HAEMORRHAGE
     Dosage: 1 DF, UNK
     Route: 042
     Dates: start: 20081119, end: 20081120
  22. PANTOZOL [Suspect]
     Indication: PROPHYLAXIS AGAINST GASTROINTESTINAL ULCER
     Dosage: 40 MG, 1X/DAY
     Route: 048
     Dates: start: 20081119, end: 20081121
  23. ACETYLCYSTEINE [Suspect]
     Indication: POSTOPERATIVE CARE
     Dosage: UNK
     Route: 048
     Dates: start: 20081121, end: 20081121
  24. EMBOLEX [Suspect]
     Indication: THROMBOSIS PROPHYLAXIS
     Dosage: 0.8 ML, 1X/DAY
     Route: 058
     Dates: start: 20081121, end: 20081128
  25. XUSAL [Suspect]
     Indication: HYPERSENSITIVITY
     Dosage: 5 MG, UNK
     Route: 048
     Dates: start: 20081125, end: 20081125
  26. MAGNESIUM [Suspect]
     Indication: HYPOMAGNESAEMIA
     Dosage: UNK
     Route: 048
     Dates: start: 20081125, end: 20081127
  27. KALIUM ^VERLA^ [Suspect]
     Indication: HYPOKALAEMIA
     Dosage: UNK
     Route: 048
     Dates: start: 20081125, end: 20081127
  28. COTRIM [Suspect]
     Indication: CYSTITIS
     Dosage: UNK
     Route: 048
     Dates: start: 20081129
  29. DIPIDOLOR [Concomitant]
     Indication: PAIN
     Dosage: UNK
     Route: 042
     Dates: start: 20081110, end: 20081110
  30. MIDAZOLAM HCL [Concomitant]
     Indication: POSTOPERATIVE CARE
     Dosage: 10 MG, UNK
     Route: 042
     Dates: start: 20081110, end: 20081110
  31. DORMICUM TABLET ^ROCHE^ [Concomitant]
     Indication: PREOPERATIVE CARE
     Dosage: 7.5 MG, UNK
     Route: 048
     Dates: start: 20081110, end: 20081110
  32. SPIRONOLACTONE [Concomitant]
     Indication: OEDEMA
     Dosage: 50 MG, 1X/DAY
     Route: 048
     Dates: start: 20081111, end: 20081111
  33. SPIRONOLACTONE [Concomitant]
     Dosage: 50 MG, 1X/DAY
     Route: 048
     Dates: start: 20081113, end: 20081113
  34. PROPACETAMOL [Concomitant]
     Indication: PAIN
     Dosage: 1 G, UNK
     Route: 042
     Dates: start: 20081112, end: 20081112
  35. BAYPEN [Concomitant]
     Indication: CYSTITIS
     Dosage: 1 G, 3X/DAY
     Route: 042
     Dates: start: 20081112, end: 20081115
  36. KONAKION [Concomitant]
     Dosage: UNK
     Route: 048
     Dates: start: 20081116, end: 20081116
  37. ACETAMINOPHEN [Concomitant]
     Indication: PAIN
     Dosage: 500 MG, 1X/DAY
     Route: 048
     Dates: start: 20081116, end: 20081117
  38. SODIUM POLYSTYRENE SULFONATE [Concomitant]
     Indication: HYPERKALAEMIA
     Dosage: UNK
     Route: 048
     Dates: start: 20081116, end: 20081117
  39. AKRINOR [Concomitant]
     Indication: HYPOTENSION
     Dosage: UNK
     Route: 042
     Dates: start: 20081118, end: 20081118

REACTIONS (3)
  - HYPERSENSITIVITY [None]
  - STEVENS-JOHNSON SYNDROME [None]
  - TOXIC EPIDERMAL NECROLYSIS [None]
